FAERS Safety Report 7601621-5 (Version None)
Quarter: 2011Q3

REPORT INFORMATION
  Report Type: 
  Country: None (occurrence: None)
  Receive Date: 20110711
  Receipt Date: 20110701
  Transmission Date: 20111222
  Serious: Yes (Other)
  Sender: FDA-Public Use
  Company Number: PHHY2011JP55874

PATIENT
  Age: 58 Year
  Sex: Female

DRUGS (2)
  1. CYCLOSPORINE [Suspect]
     Indication: INTERSTITIAL LUNG DISEASE
  2. PREDNISOLONE [Concomitant]
     Indication: INTERSTITIAL LUNG DISEASE

REACTIONS (1)
  - ALVEOLAR PROTEINOSIS [None]
